FAERS Safety Report 9337498 (Version 5)
Quarter: 2014Q1

REPORT INFORMATION
  Report Type: Report from Study
  Country: US (occurrence: US)
  Receive Date: 20130607
  Receipt Date: 20140117
  Transmission Date: 20141002
  Serious: Yes (Hospitalization)
  Sender: FDA-Public Use
  Company Number: US-ACTELION-A-NJ2013-84164

PATIENT
  Age: 76 Year
  Sex: Female

DRUGS (4)
  1. VELETRI [Suspect]
     Indication: PULMONARY ARTERIAL HYPERTENSION
     Dosage: 47.45 NG/KG, PER MIN
     Route: 042
     Dates: start: 20121128, end: 20131207
  2. VELETRI [Suspect]
     Dosage: 50 NG/KG, PER MIN
     Route: 042
     Dates: start: 20121128
  3. ADCIRCA [Concomitant]
  4. LETAIRIS [Concomitant]

REACTIONS (13)
  - Plasma cell myeloma [Unknown]
  - Haemorrhage [Recovering/Resolving]
  - Platelet count decreased [Recovering/Resolving]
  - Epistaxis [Recovering/Resolving]
  - Anaemia [Recovering/Resolving]
  - Dyspnoea [Recovering/Resolving]
  - Haemoglobin decreased [Recovering/Resolving]
  - Blood count abnormal [Recovering/Resolving]
  - Large intestine polyp [Recovered/Resolved]
  - Polypectomy [Recovered/Resolved]
  - Transfusion [Recovered/Resolved]
  - Gastrointestinal haemorrhage [Recovered/Resolved]
  - Asthenia [Recovering/Resolving]
